FAERS Safety Report 23054185 (Version 1)
Quarter: 2023Q4

REPORT INFORMATION
  Report Type: Spontaneous
  Country: GB (occurrence: GB)
  Receive Date: 20231011
  Receipt Date: 20231011
  Transmission Date: 20240110
  Serious: Yes (Other)
  Sender: FDA-Public Use
  Company Number: GB-MHRA-MED-202308171315370760-FLYMJ

PATIENT
  Age: 66 Year
  Sex: Female

DRUGS (1)
  1. GAMMAPLEX [Suspect]
     Active Substance: HUMAN IMMUNOGLOBULIN G
     Indication: Product used for unknown indication
     Dosage: INFUSE THREE 10G (100ML) VIALS TO GIVE A COMBINED DOSE OF 30G EVERY THREE WEEKS INTRAVENOUSLY AS ...
     Route: 042

REACTIONS (2)
  - Seizure [Recovered/Resolved]
  - Mydriasis [Recovered/Resolved]

NARRATIVE: CASE EVENT DATE: 20230815
